FAERS Safety Report 16262622 (Version 2)
Quarter: 2019Q2

REPORT INFORMATION
  Report Type: Spontaneous
  Country: US (occurrence: US)
  Receive Date: 20190502
  Receipt Date: 20190628
  Transmission Date: 20190711
  Serious: No
  Sender: FDA-Public Use
  Company Number: US-TAKEDA-2019TUS025358

PATIENT
  Sex: Female
  Weight: 63.04 kg

DRUGS (1)
  1. NINLARO [Suspect]
     Active Substance: IXAZOMIB CITRATE
     Indication: PLASMA CELL MYELOMA
     Dosage: 2.3 MILLIGRAM
     Route: 048
     Dates: start: 20180507

REACTIONS (5)
  - Nephrolithiasis [Unknown]
  - Cholelithiasis [Unknown]
  - Asthenia [Unknown]
  - Dizziness [Unknown]
  - Neuropathy peripheral [Recovering/Resolving]
